FAERS Safety Report 24046670 (Version 7)
Quarter: 2024Q4

REPORT INFORMATION
  Report Type: Spontaneous
  Country: FR (occurrence: FR)
  Receive Date: 20240703
  Receipt Date: 20241216
  Transmission Date: 20250115
  Serious: Yes (Life-Threatening, Hospitalization, Other)
  Sender: BIOVITRUM
  Company Number: FR-BIOVITRUM-2024-FR-009329

PATIENT
  Age: 21 Month
  Sex: Male
  Weight: 10 kg

DRUGS (8)
  1. GAMIFANT [Suspect]
     Active Substance: EMAPALUMAB-LZSG
     Indication: Haemophagocytic lymphohistiocytosis
     Dosage: 6MG/KG
  2. GAMIFANT [Suspect]
     Active Substance: EMAPALUMAB-LZSG
     Dosage: 6 MG/KG?60 MG ONCE
     Route: 042
     Dates: start: 20240628, end: 20240628
  3. ANAKINRA [Suspect]
     Active Substance: ANAKINRA
     Indication: Kawasaki^s disease
     Dosage: 4.5MG/KG/DAY
  4. CYCLOSPORINE [Concomitant]
     Active Substance: CYCLOSPORINE
     Indication: Haemophagocytic lymphohistiocytosis
     Dosage: 2 MG/KG, 32 MG
     Route: 042
     Dates: start: 20240626
  5. CANAKINUMAB [Concomitant]
     Active Substance: CANAKINUMAB
     Indication: Still^s disease
     Dosage: EVERY 3 WEEKS
     Route: 058
     Dates: start: 20231116
  6. SOLU-MEDROL [Concomitant]
     Active Substance: METHYLPREDNISOLONE SODIUM SUCCINATE
     Indication: Haemophagocytic lymphohistiocytosis
     Dosage: PER DAY
     Route: 042
     Dates: start: 202307
  7. SOLU-MEDROL [Concomitant]
     Active Substance: METHYLPREDNISOLONE SODIUM SUCCINATE
     Dosage: MORNING AND EVENING
     Route: 042
  8. SOLU-MEDROL [Concomitant]
     Active Substance: METHYLPREDNISOLONE SODIUM SUCCINATE
     Dosage: ON WEEKENDS
     Route: 042

REACTIONS (7)
  - Acute respiratory distress syndrome [Recovered/Resolved]
  - Hepatic cytolysis [Recovering/Resolving]
  - Off label use [Recovered/Resolved]
  - Drug reaction with eosinophilia and systemic symptoms [Recovering/Resolving]
  - Drug ineffective for unapproved indication [Recovered/Resolved]
  - Alveolar proteinosis [Unknown]
  - Non-cardiogenic pulmonary oedema [Recovering/Resolving]

NARRATIVE: CASE EVENT DATE: 20240628
